FAERS Safety Report 6622060-X (Version None)
Quarter: 2010Q1

REPORT INFORMATION
  Report Type: 
  Country: None (occurrence: None)
  Receive Date: 20100301
  Receipt Date: 20100208
  Transmission Date: 20100710
  Serious: Yes (Hospitalization)
  Sender: FDA-Public Use
  Company Number: 2010-00828

PATIENT
  Age: 83 Year
  Sex: Male

DRUGS (1)
  1. BCG THERAPEUTICS [Suspect]
     Indication: BLADDER CANCER
     Dosage: 81.0 MG I.VES., BLADDER/5 YRS BEFORE ADMISSION
     Route: 043

REACTIONS (6)
  - ABDOMINAL PAIN [None]
  - BOVINE TUBERCULOSIS [None]
  - MALAISE [None]
  - PSOAS ABSCESS [None]
  - RETROPERITONEAL ABSCESS [None]
  - WEIGHT DECREASED [None]
